FAERS Safety Report 6036167-1 (Version None)
Quarter: 2009Q1

REPORT INFORMATION
  Report Type: 
  Country: None (occurrence: None)
  Receive Date: 20090113
  Receipt Date: 20090108
  Transmission Date: 20090719
  Serious: Yes (Hospitalization)
  Sender: FDA-Public Use
  Company Number: US-B.I. PHARMACEUTICALS,INC./RIDGEFIELD-2008-BP-18522BP

PATIENT
  Sex: Female

DRUGS (9)
  1. COMBIVENT [Suspect]
     Indication: CHRONIC OBSTRUCTIVE PULMONARY DISEASE
     Route: 055
  2. VOSPIRE [Concomitant]
  3. BENZONATATE [Concomitant]
  4. SINGULAIR [Concomitant]
  5. ZYRTEC [Concomitant]
     Route: 048
  6. DUONEB [Concomitant]
  7. TERBUTALINE SULFATE [Concomitant]
  8. SPIRIVA [Concomitant]
     Dates: start: 20081001
  9. ALBUTEROL [Concomitant]
     Dates: start: 20081001

REACTIONS (2)
  - ALOPECIA [None]
  - BRONCHITIS [None]
